FAERS Safety Report 15413165 (Version 1)
Quarter: 2018Q3

REPORT INFORMATION
  Report Type: Report from Study
  Country: None (occurrence: GB)
  Receive Date: 20180921
  Receipt Date: 20180921
  Transmission Date: 20181010
  Serious: Yes (Hospitalization)
  Sender: FDA-Public Use
  Company Number: GB-ABBVIE-18K-167-2446110-00

PATIENT
  Age: 35 Year
  Sex: Female

DRUGS (1)
  1. HUMIRA [Suspect]
     Active Substance: ADALIMUMAB
     Indication: CROHN^S DISEASE
     Dosage: LOADING DOSE
     Route: 058
     Dates: start: 20180806, end: 20180806

REACTIONS (8)
  - Dizziness [Recovering/Resolving]
  - Dysphagia [Unknown]
  - Influenza [Unknown]
  - Somnolence [Recovering/Resolving]
  - Scratch [Unknown]
  - Asthma [Unknown]
  - Drug hypersensitivity [Unknown]
  - Tremor [Recovering/Resolving]

NARRATIVE: CASE EVENT DATE: 201808
